FAERS Safety Report 26005912 (Version 1)
Quarter: 2025Q4

REPORT INFORMATION
  Report Type: Spontaneous
  Country: US (occurrence: None)
  Receive Date: 20251105
  Receipt Date: 20251105
  Transmission Date: 20260117
  Serious: Yes (Other)
  Sender: FDA-CTU
  Company Number: None

PATIENT
  Age: 77 Year
  Sex: Female

DRUGS (1)
  1. BOTOX [Suspect]
     Active Substance: ONABOTULINUMTOXINA
     Dosage: 155 UNITS  EVERY 9 DAYS

REACTIONS (5)
  - Swelling face [None]
  - Swelling of eyelid [None]
  - Drug ineffective [None]
  - Neck pain [None]
  - Influenza [None]
